FAERS Safety Report 6194820-3 (Version None)
Quarter: 2009Q2

REPORT INFORMATION
  Report Type: 
  Country: None (occurrence: None)
  Receive Date: 20090519
  Receipt Date: 20080620
  Transmission Date: 20091009
  Serious: No
  Sender: FDA-Public Use
  Company Number: US-TYCO HEALTHCARE/MALLINCKRODT-T200801052

PATIENT

DRUGS (4)
  1. METHADONE [Suspect]
     Indication: ARTHRALGIA
     Dosage: LOWER UNSPECIFIED DOSE
     Dates: start: 20060101
  2. METHADONE [Suspect]
     Dosage: 40 MG, BID
     Route: 048
     Dates: start: 20060101, end: 20080515
  3. HYDROCHLOROTHIAZIDE [Concomitant]
     Indication: BLOOD PRESSURE
     Dosage: UNK, QD
     Route: 048
  4. DULCOLAX                           /00064401/ [Concomitant]
     Indication: CONSTIPATION
     Dosage: UNK, PRN
     Route: 048
     Dates: start: 20060101, end: 20080601

REACTIONS (5)
  - AGITATION [None]
  - DISTURBANCE IN ATTENTION [None]
  - INSOMNIA [None]
  - MUSCULAR WEAKNESS [None]
  - OEDEMA PERIPHERAL [None]
